FAERS Safety Report 11555204 (Version 1)
Quarter: 2015Q3

REPORT INFORMATION
  Report Type: Spontaneous
  Country: US (occurrence: US)
  Receive Date: 20150903
  Receipt Date: 20150903
  Transmission Date: 20151125
  Serious: No
  Sender: FDA-Public Use
  Company Number: US-ELI_LILLY_AND_COMPANY-US201010002548

PATIENT
  Age: 61 Year
  Sex: Female

DRUGS (3)
  1. HUMALOG [Suspect]
     Active Substance: INSULIN LISPRO
     Indication: TYPE 2 DIABETES MELLITUS
     Dosage: UNK, 3/D
  2. HUMALOG [Suspect]
     Active Substance: INSULIN LISPRO
     Indication: TYPE 2 DIABETES MELLITUS
     Dosage: UNK, 3/D
     Dates: start: 2009
  3. LANTUS [Concomitant]
     Active Substance: INSULIN GLARGINE

REACTIONS (11)
  - Blood glucose decreased [Recovered/Resolved]
  - Drug dispensing error [Unknown]
  - Tremor [Recovering/Resolving]
  - Feeling hot [Recovering/Resolving]
  - Headache [Not Recovered/Not Resolved]
  - Incorrect drug dosage form administered [Unknown]
  - Incorrect dose administered [Unknown]
  - Hyperhidrosis [Recovering/Resolving]
  - Asthenia [Recovering/Resolving]
  - Fear [Unknown]
  - Eye disorder [Recovering/Resolving]

NARRATIVE: CASE EVENT DATE: 20100901
